FAERS Safety Report 7071935-9 (Version None)
Quarter: 2010Q4

REPORT INFORMATION
  Report Type: 
  Country: None (occurrence: None)
  Receive Date: 20101029
  Receipt Date: 20091105
  Transmission Date: 20110411
  Serious: No
  Sender: FDA-Public Use
  Company Number: A0815402A

PATIENT
  Age: 65 Year
  Sex: Female

DRUGS (8)
  1. ADVAIR DISKUS 100/50 [Suspect]
     Indication: CHRONIC OBSTRUCTIVE PULMONARY DISEASE
     Dosage: 1PUFF TWICE PER DAY
     Route: 055
     Dates: start: 20080101
  2. SIMVASTATIN [Concomitant]
  3. TRIPACK [Concomitant]
  4. SERTRALINE HYDROCHLORIDE [Concomitant]
  5. EVISTA [Concomitant]
  6. METFORMIN [Concomitant]
  7. NASONEX [Concomitant]
  8. OMEPRAZOLE [Concomitant]

REACTIONS (1)
  - DYSPNOEA [None]
